FAERS Safety Report 18446314 (Version 5)
Quarter: 2020Q4

REPORT INFORMATION
  Report Type: Report from Study
  Country: US (occurrence: US)
  Receive Date: 20201030
  Receipt Date: 20201228
  Transmission Date: 20210114
  Serious: Yes (Death, Hospitalization, Other)
  Sender: FDA-Public Use
  Company Number: US-AGIOS-2010US02230

PATIENT

DRUGS (2)
  1. PREDNISONE. [Concomitant]
     Active Substance: PREDNISONE
     Indication: PRODUCT USED FOR UNKNOWN INDICATION
     Dosage: 20 MILLIGRAM, QD
  2. TIBSOVO [Suspect]
     Active Substance: IVOSIDENIB
     Indication: ACUTE MYELOID LEUKAEMIA
     Dosage: 250 MILLIGRAM, 2 TABLETS (500 MG) DAILY
     Route: 048
     Dates: start: 20201024, end: 20201207

REACTIONS (15)
  - Blood count abnormal [Unknown]
  - Illness [Unknown]
  - Listless [Unknown]
  - Somnolence [Recovered/Resolved]
  - Appetite disorder [Unknown]
  - Dizziness [Recovered/Resolved]
  - Decreased appetite [Unknown]
  - Diverticulitis [Unknown]
  - Large intestine infection [Unknown]
  - Feeling abnormal [Unknown]
  - Blood potassium decreased [Unknown]
  - Nausea [Unknown]
  - Off label use [Not Recovered/Not Resolved]
  - Death [Fatal]
  - Fatigue [Recovered/Resolved]

NARRATIVE: CASE EVENT DATE: 20201207
